FAERS Safety Report 4283128-9 (Version None)
Quarter: 2004Q1

REPORT INFORMATION
  Report Type: 
  Country: None (occurrence: None)
  Receive Date: 20040122
  Receipt Date: 20040106
  Transmission Date: 20041129
  Serious: Yes (Other)
  Sender: FDA-Public Use
  Company Number: 2004SA000005

PATIENT
  Age: 50 Year
  Sex: Male
  Weight: 74 kg

DRUGS (6)
  1. THYMOGLOBULIN [Suspect]
     Indication: APLASTIC ANAEMIA
     Dosage: 185 MG; ONCE; INTRAVENOUS
     Route: 042
     Dates: start: 20030627, end: 20030704
  2. NEORAL [Suspect]
     Indication: APLASTIC ANAEMIA
     Dosage: 200 MG; TWICE A DAY; ORAL
     Route: 048
     Dates: start: 20030627
  3. METHYLPREDNISOLONE [Suspect]
     Indication: APLASTIC ANAEMIA
     Dosage: 150 MG; DAILY
     Dates: start: 20030627, end: 20030710
  4. ADVIL [Concomitant]
  5. DOLIPRANE [Concomitant]
  6. GELUPRANE [Concomitant]

REACTIONS (8)
  - ALANINE AMINOTRANSFERASE INCREASED [None]
  - ALLOGENIC BONE MARROW TRANSPLANTATION THERAPY [None]
  - ASPARTATE AMINOTRANSFERASE INCREASED [None]
  - CARDIAC OUTPUT DECREASED [None]
  - GAMMA-GLUTAMYLTRANSFERASE INCREASED [None]
  - HEPATIC FUNCTION ABNORMAL [None]
  - ISCHAEMIC HEPATITIS [None]
  - RENAL IMPAIRMENT [None]
